FAERS Safety Report 4513506-1 (Version None)
Quarter: 2004Q4

REPORT INFORMATION
  Report Type: 
  Country: None (occurrence: None)
  Receive Date: 20041130
  Receipt Date: 20041119
  Transmission Date: 20050328
  Serious: Yes (Hospitalization)
  Sender: FDA-Public Use
  Company Number: DE-JNJFOC-20041101846

PATIENT
  Age: 84 Year
  Sex: Female

DRUGS (5)
  1. ZALDIAR [Suspect]
     Route: 049
  2. ZALDIAR [Suspect]
     Route: 049
  3. MARCUMAR [Concomitant]
     Route: 065
  4. CORDAREX [Concomitant]
     Route: 065
  5. ATL-BLOCKER [Concomitant]
     Route: 065

REACTIONS (4)
  - APLASTIC ANAEMIA [None]
  - DEPRESSED LEVEL OF CONSCIOUSNESS [None]
  - HAEMOGLOBIN DECREASED [None]
  - RETICULOCYTE COUNT INCREASED [None]
